FAERS Safety Report 20777420 (Version 2)
Quarter: 2022Q2

REPORT INFORMATION
  Report Type: Report from Study
  Country: CA (occurrence: CA)
  Receive Date: 20220503
  Receipt Date: 20220506
  Transmission Date: 20220721
  Serious: Yes (Hospitalization)
  Sender: FDA-Public Use
  Company Number: CA-CELLTRION INC.-2021CA008755

PATIENT

DRUGS (2)
  1. TRUXIMA [Suspect]
     Active Substance: RITUXIMAB-ABBS
     Indication: Vasculitis
     Dosage: 900 MG
     Route: 042
     Dates: start: 20210526
  2. TRUXIMA [Suspect]
     Active Substance: RITUXIMAB-ABBS
     Dosage: 830 MG
     Route: 042
     Dates: start: 20210526

REACTIONS (3)
  - Hospitalisation [Unknown]
  - Arthralgia [Unknown]
  - Intentional dose omission [Unknown]
